FAERS Safety Report 10803444 (Version 1)
Quarter: 2015Q1

REPORT INFORMATION
  Report Type: Spontaneous
  Country: IT (occurrence: IT)
  Receive Date: 20150217
  Receipt Date: 20150217
  Transmission Date: 20150721
  Serious: Yes (Other)
  Sender: FDA-Public Use
  Company Number: PHHY2015IT015862

PATIENT
  Sex: Male

DRUGS (1)
  1. LISINOPRIL. [Suspect]
     Active Substance: LISINOPRIL
     Indication: MEDICATION ERROR
     Dosage: 40 MG, ONCE/SINGLE
     Route: 048
     Dates: start: 20141029, end: 20141029

REACTIONS (3)
  - Syncope [Recovering/Resolving]
  - Drug administration error [Recovering/Resolving]
  - Face oedema [Recovering/Resolving]

NARRATIVE: CASE EVENT DATE: 20141029
